FAERS Safety Report 4329894-5 (Version None)
Quarter: 2004Q1

REPORT INFORMATION
  Report Type: 
  Country: None (occurrence: None)
  Receive Date: 20040329
  Receipt Date: 20031216
  Transmission Date: 20041129
  Serious: No
  Sender: FDA-Public Use
  Company Number: 03P-163-0239479-00

PATIENT
  Sex: Male
  Weight: 71.2147 kg

DRUGS (6)
  1. HUMIRA [Suspect]
     Dosage: 40 MG, 1 IN 2 WK, SUBCUTANEOUS; 1 IN 10 D
     Route: 058
     Dates: start: 20030101
  2. HUMIRA [Suspect]
     Dosage: 40 MG, 1 IN 2 WK, SUBCUTANEOUS; 1 IN 10 D
     Route: 058
     Dates: start: 20030926
  3. PREDNISONE [Concomitant]
  4. ATENOLOL [Concomitant]
  5. ASPIRIN [Concomitant]
  6. HYDROCHLOROTHIAZIDE [Concomitant]

REACTIONS (3)
  - C-REACTIVE PROTEIN INCREASED [None]
  - INJECTION SITE BURNING [None]
  - RED BLOOD CELL SEDIMENTATION RATE INCREASED [None]
